FAERS Safety Report 9879673 (Version 1)
Quarter: 2014Q1

REPORT INFORMATION
  Report Type: Spontaneous
  Country: DE (occurrence: DE)
  Receive Date: 20140206
  Receipt Date: 20140206
  Transmission Date: 20141002
  Serious: Yes (Other)
  Sender: FDA-Public Use
  Company Number: DE-TAKEDA-2014TUS000813

PATIENT
  Sex: 0

DRUGS (1)
  1. ADENURIC [Suspect]
     Dosage: 80 MG, 1 IN 1 D
     Route: 048
     Dates: start: 20140115, end: 20140119

REACTIONS (6)
  - Extrasystoles [Recovering/Resolving]
  - Fall [Recovering/Resolving]
  - Perianal erythema [Recovering/Resolving]
  - Eczema [Recovering/Resolving]
  - Palpitations [Recovering/Resolving]
  - Dizziness [Recovering/Resolving]
